FAERS Safety Report 5339049-3 (Version None)
Quarter: 2007Q2

REPORT INFORMATION
  Report Type: 
  Country: None (occurrence: None)
  Receive Date: 20070525
  Receipt Date: 20070510
  Transmission Date: 20071010
  Serious: Yes (Hospitalization)
  Sender: FDA-Public Use
  Company Number: S06-GER-04667-01

PATIENT
  Age: 31 Year
  Sex: Female

DRUGS (2)
  1. ESCITALOPRAM OXALATE [Suspect]
     Indication: GENERALISED ANXIETY DISORDER
     Dosage: 10 MG QD PO
     Route: 048
     Dates: start: 20060801
  2. FEMIGOA [Concomitant]

REACTIONS (3)
  - CAESAREAN SECTION [None]
  - DENTAL CARIES [None]
  - DRUG EXPOSURE DURING PREGNANCY [None]
